FAERS Safety Report 5662371-8 (Version None)
Quarter: 2008Q1

REPORT INFORMATION
  Report Type: 
  Country: None (occurrence: None)
  Receive Date: 20080310
  Receipt Date: 20080229
  Transmission Date: 20080703
  Serious: Yes (Hospitalization)
  Sender: FDA-Public Use
  Company Number: 2008AL001250

PATIENT
  Age: 22 Year
  Sex: Female

DRUGS (3)
  1. PROMETHAZINE HCL [Suspect]
     Indication: PROPHYLAXIS OF NAUSEA AND VOMITING
     Dosage: 25 MG;QD;PO
     Route: 048
  2. RANITIDINE [Suspect]
     Indication: PROPHYLAXIS OF NAUSEA AND VOMITING
     Dosage: 250 MG;BID
  3. PROCHLORPERAZINE [Concomitant]

REACTIONS (22)
  - AKATHISIA [None]
  - ANAEMIA [None]
  - ANXIETY [None]
  - BLOOD THYROID STIMULATING HORMONE DECREASED [None]
  - DEHYDRATION [None]
  - DEPRESSION [None]
  - DIZZINESS [None]
  - DRUG EXPOSURE DURING PREGNANCY [None]
  - DYSPNOEA [None]
  - FEELING ABNORMAL [None]
  - FEELING OF BODY TEMPERATURE CHANGE [None]
  - HYPERHIDROSIS [None]
  - HYPOTENSION [None]
  - INTENTIONAL SELF-INJURY [None]
  - MOVEMENT DISORDER [None]
  - PALPITATIONS [None]
  - PULMONARY EMBOLISM [None]
  - RESTLESSNESS [None]
  - SPINAL COMPRESSION FRACTURE [None]
  - SUICIDAL IDEATION [None]
  - THYROXINE FREE DECREASED [None]
  - TREMOR [None]
